FAERS Safety Report 21558401 (Version 2)
Quarter: 2022Q4

REPORT INFORMATION
  Report Type: Spontaneous
  Country: US (occurrence: US)
  Receive Date: 20221107
  Receipt Date: 20221125
  Transmission Date: 20230113
  Serious: No
  Sender: FDA-Public Use
  Company Number: US-ELI_LILLY_AND_COMPANY-US202211001201

PATIENT
  Age: 65 Year
  Sex: Female

DRUGS (6)
  1. FORTEO [Suspect]
     Active Substance: TERIPARATIDE
     Indication: Fracture
     Dosage: UNK UNK, UNKNOWN
     Route: 065
     Dates: start: 202202
  2. FORTEO [Suspect]
     Active Substance: TERIPARATIDE
     Indication: Fracture
     Dosage: UNK UNK, UNKNOWN
     Route: 065
     Dates: start: 202202
  3. FORTEO [Suspect]
     Active Substance: TERIPARATIDE
     Indication: Fracture
     Dosage: UNK UNK, UNKNOWN
     Route: 065
     Dates: start: 202202
  4. FORTEO [Suspect]
     Active Substance: TERIPARATIDE
     Dosage: UNK UNK, UNKNOWN
     Route: 065
  5. FORTEO [Suspect]
     Active Substance: TERIPARATIDE
     Dosage: UNK UNK, UNKNOWN
     Route: 065
  6. FORTEO [Suspect]
     Active Substance: TERIPARATIDE
     Dosage: UNK UNK, UNKNOWN
     Route: 065

REACTIONS (8)
  - Migraine [Unknown]
  - Off label use [Unknown]
  - Mobility decreased [Unknown]
  - Incorrect product administration duration [Unknown]
  - Muscle rigidity [Recovered/Resolved]
  - Arthralgia [Not Recovered/Not Resolved]
  - Pain [Not Recovered/Not Resolved]
  - Dyspnoea [Recovered/Resolved]

NARRATIVE: CASE EVENT DATE: 20220204
